FAERS Safety Report 9203276 (Version 1)
Quarter: 2013Q2

REPORT INFORMATION
  Report Type: Spontaneous
  Country: FR (occurrence: FR)
  Receive Date: 20130402
  Receipt Date: 20130402
  Transmission Date: 20140414
  Serious: Yes (Hospitalization)
  Sender: FDA-Public Use
  Company Number: FR-JNJFOC-20130309203

PATIENT
  Age: 67 Year
  Sex: Male

DRUGS (3)
  1. ZYTIGA [Suspect]
     Indication: PROSTATE CANCER
     Route: 048
     Dates: start: 201211
  2. PREDNISONE [Concomitant]
     Indication: PROSTATE CANCER
     Route: 065
     Dates: start: 201211
  3. ASPIRIN [Concomitant]
     Indication: ANTICOAGULANT THERAPY
     Route: 065

REACTIONS (3)
  - Angina pectoris [Not Recovered/Not Resolved]
  - Prostatitis [Unknown]
  - Prostatic specific antigen increased [Not Recovered/Not Resolved]
